FAERS Safety Report 7998378-5 (Version None)
Quarter: 2011Q4

REPORT INFORMATION
  Report Type: 
  Country: None (occurrence: None)
  Receive Date: 20111221
  Receipt Date: 20110830
  Transmission Date: 20120403
  Serious: No
  Sender: FDA-Public Use
  Company Number: US-GLAXOSMITHKLINE-A0942864A

PATIENT
  Age: 45 Year
  Sex: Male

DRUGS (3)
  1. LOPID [Concomitant]
  2. INSULIN [Concomitant]
  3. LOVAZA [Suspect]
     Indication: BLOOD TRIGLYCERIDES INCREASED
     Dosage: 5CAP THREE TIMES PER DAY
     Route: 048

REACTIONS (1)
  - OVERDOSE [None]
